FAERS Safety Report 18418664 (Version 1)
Quarter: 2020Q4

REPORT INFORMATION
  Report Type: Spontaneous
  Country: GB (occurrence: GB)
  Receive Date: 20201023
  Receipt Date: 20201023
  Transmission Date: 20210114
  Serious: Yes (Other)
  Sender: FDA-Public Use
  Company Number: GB-TEVA-2020-GB-1841415

PATIENT
  Sex: Male

DRUGS (28)
  1. QUETIAPINE. [Suspect]
     Active Substance: QUETIAPINE
     Dosage: MEDICINE FROM INDIA
     Route: 065
  2. SODIUM CHLORIDE. [Suspect]
     Active Substance: SODIUM CHLORIDE
     Dosage: CELTIC SEA SALT - SUPPLEMENT
     Route: 065
  3. LAMOTRIGINE. [Suspect]
     Active Substance: LAMOTRIGINE
     Route: 065
  4. FLAGYL [Suspect]
     Active Substance: METRONIDAZOLE\METRONIDAZOLE HYDROCHLORIDE
     Dosage: MEDICINE FROM INDIA
     Route: 065
  5. CANNABIDIOL [Suspect]
     Active Substance: CANNABIDIOL
     Dosage: CBD OIL - SUPPLEMENT
     Route: 065
  6. ZINC. [Suspect]
     Active Substance: ZINC
     Dosage: SUPPLEMENT
     Route: 065
  7. PEA PROTEIN [DIETARY SUPPLEMENT\HERBALS] [Suspect]
     Active Substance: DIETARY SUPPLEMENT\HERBALS
     Dosage: SUPPLEMENT
     Route: 065
  8. MAGNESIUM [Suspect]
     Active Substance: MAGNESIUM
     Dosage: SUPPLEMENT
     Route: 065
  9. TEA, GREEN [Suspect]
     Active Substance: GREEN TEA LEAF
     Dosage: MATCHA
     Route: 065
  10. PREGABALIN. [Suspect]
     Active Substance: PREGABALIN
     Dosage: MEDICINE FROM UK
     Route: 065
  11. SULFAMETHOXAZOLE [Suspect]
     Active Substance: SULFAMETHOXAZOLE
     Dosage: MEDICINE FROM INDIA
     Route: 065
  12. PIMPINELLA ANISUM [Suspect]
     Active Substance: PIMPINELLA ANISUM WHOLE
     Dosage: BURBUR TINCTURE - SUPPLEMENT
     Route: 065
  13. SACCHAROMYCES BOULARDII [Suspect]
     Active Substance: SACCHAROMYCES CEREVISIAE
     Dosage: SUPPLEMENT
     Route: 065
  14. EPSOM SALT [Suspect]
     Active Substance: MAGNESIUM SULFATE
     Dosage: EBSOM BATH SALTS - SUPPLEMENT
     Route: 065
  15. L-ASPARTIC ACID [Suspect]
     Active Substance: ASPARTIC ACID
     Dosage: SUPPLEMENT
     Route: 065
  16. ORNITHINE [Suspect]
     Active Substance: ORNITHINE
     Dosage: L-ORTHANTHINE -SUPPLEMENT
     Route: 065
  17. AMOXICILLIN. [Suspect]
     Active Substance: AMOXICILLIN
     Route: 065
  18. RIFAMPICIN [Suspect]
     Active Substance: RIFAMPIN
     Dosage: MEDICINE FROM INDIA
     Route: 065
  19. CURCUMIN E100 [Suspect]
     Active Substance: CURCUMIN\DIETARY SUPPLEMENT
     Dosage: LIPOSOMAL CURCUMIN - SUPPLEMENT
     Route: 065
  20. ASCORBIC ACID. [Suspect]
     Active Substance: ASCORBIC ACID
     Dosage: LIPOSOMAL VITAMIN C - SUPPLEMENT
     Route: 065
  21. MINOCYCLINE [Suspect]
     Active Substance: MINOCYCLINE HYDROCHLORIDE
     Dosage: MEDICINE FROM INDIA
     Route: 065
  22. L-THEANINE [Suspect]
     Active Substance: DIETARY SUPPLEMENT
     Dosage: LIPOSOMAL GABA WITH L THEANINE - SUPPLEMENT
     Route: 065
  23. GAMMA-AMINOBUTYRIC ACID [Suspect]
     Active Substance: .GAMMA.-AMINOBUTYRIC ACID
     Dosage: LIPOSOMAL GABA WITH L THEANINE - SUPPLEMENT
     Route: 065
  24. TRIMETHOPRIM. [Suspect]
     Active Substance: TRIMETHOPRIM
     Dosage: MEDICINE FROM INDIA
     Route: 065
  25. GLUTATHIONE [Suspect]
     Active Substance: GLUTATHIONE
     Dosage: LIPOSOMAL GLUTATHIONE - SUPPLEMENT
     Route: 065
  26. MILK [Suspect]
     Active Substance: COW MILK
     Dosage: MILK KEFIR - SUPPLEMENT
     Route: 065
  27. DESMODIUM [HERBALS] [Suspect]
     Active Substance: HERBALS
     Dosage: BURBUR TINCTURE - SUPPLEMENT
     Route: 065
  28. SILYBUM MARIANUM [Suspect]
     Active Substance: DIETARY SUPPLEMENT\HERBALS\MILK THISTLE
     Dosage: SUPPLEMENT
     Route: 065

REACTIONS (2)
  - Seizure [Unknown]
  - Metal poisoning [Unknown]

NARRATIVE: CASE EVENT DATE: 202006
